FAERS Safety Report 9526224 (Version 1)
Quarter: 2013Q3

REPORT INFORMATION
  Report Type: Spontaneous
  Country: US (occurrence: US)
  Receive Date: 20130916
  Receipt Date: 20130916
  Transmission Date: 20140515
  Serious: No
  Sender: FDA-Public Use
  Company Number: US-009507513-1309USA003492

PATIENT
  Sex: Male

DRUGS (3)
  1. REBETOL [Suspect]
     Indication: HEPATITIS C
     Dosage: 3 TABLETS AT AM AND 3 TABLETS AT PM
     Route: 048
     Dates: start: 20130417
  2. VICTRELIS [Suspect]
     Indication: HEPATITIS C
     Route: 048
  3. PEGASYS [Suspect]
     Indication: HEPATITIS C
     Dosage: PROCLICK INJECTION
     Route: 065
     Dates: start: 20130417

REACTIONS (11)
  - Balance disorder [Unknown]
  - Pain [Unknown]
  - Decreased appetite [Unknown]
  - Insomnia [Unknown]
  - Gastrooesophageal reflux disease [Unknown]
  - Abdominal distension [Unknown]
  - Anxiety [Unknown]
  - Pruritus [Unknown]
  - Dry skin [Unknown]
  - Drug dose omission [Unknown]
  - Rash [Unknown]
